FAERS Safety Report 14066889 (Version 2)
Quarter: 2017Q4

REPORT INFORMATION
  Report Type: Spontaneous
  Country: US (occurrence: US)
  Receive Date: 20171009
  Receipt Date: 20171013
  Transmission Date: 20180321
  Serious: Yes (Hospitalization)
  Sender: FDA-Public Use
  Company Number: US-SA-2016SA228330

PATIENT
  Age: 64 Year
  Sex: Female

DRUGS (2)
  1. ENOXAPARIN SODIUM. [Suspect]
     Active Substance: ENOXAPARIN SODIUM
     Indication: PULMONARY EMBOLISM
     Route: 065
  2. ENOXAPARIN SODIUM. [Suspect]
     Active Substance: ENOXAPARIN SODIUM
     Indication: DEEP VEIN THROMBOSIS
     Route: 065

REACTIONS (5)
  - Paraplegia [Recovering/Resolving]
  - Muscle haemorrhage [Recovering/Resolving]
  - Haematocrit decreased [Recovering/Resolving]
  - Hypotension [Recovering/Resolving]
  - Neuropathy peripheral [Recovering/Resolving]
